FAERS Safety Report 17205483 (Version 1)
Quarter: 2019Q4

REPORT INFORMATION
  Report Type: Spontaneous
  Country: US (occurrence: US)
  Receive Date: 20191204
  Receipt Date: 20191204
  Transmission Date: 20200122
  Serious: No
  Sender: FDA-Public Use
  Company Number: None

PATIENT
  Sex: Female

DRUGS (2)
  1. REMODULIN [Suspect]
     Active Substance: TREPROSTINIL
  2. VIAL ADAPTER ++ Q-STYLE BD385108 BECTON DICKINSON [Suspect]
     Active Substance: DEVICE
     Indication: PULMONARY ARTERIAL HYPERTENSION
     Dosage: ?          OTHER DOSE:97.5 NG/KG/MIN;OTHER FREQUENCY:CONTINOUS ;?
     Route: 058
     Dates: start: 20190522

REACTIONS (2)
  - Product closure issue [None]
  - Skin discolouration [None]
